FAERS Safety Report 8104573-7 (Version None)
Quarter: 2012Q1

REPORT INFORMATION
  Report Type: 
  Country: None (occurrence: None)
  Receive Date: 20120201
  Receipt Date: 20120124
  Transmission Date: 20120608
  Serious: Yes (Other)
  Sender: FDA-Public Use
  Company Number: JP-MERCK-1201USA03307

PATIENT
  Age: 60 Year
  Sex: Male

DRUGS (9)
  1. ADALAT [Suspect]
     Route: 065
  2. PEPCID [Suspect]
     Route: 048
  3. ASPIRIN [Suspect]
     Route: 065
  4. NASONEX [Suspect]
     Route: 065
  5. MUCODYNE [Suspect]
     Route: 065
  6. MAGLAX (MAGNESIUM OXIDE) [Suspect]
     Route: 065
  7. CEFAZOLIN SODIUM [Suspect]
     Route: 065
  8. MICARDIS [Suspect]
     Route: 065
  9. DEPAS [Suspect]
     Route: 065

REACTIONS (1)
  - BREAST INDURATION [None]
